FAERS Safety Report 10614731 (Version 2)
Quarter: 2014Q4

REPORT INFORMATION
  Report Type: Report from Study
  Country: IE (occurrence: IE)
  Receive Date: 20141201
  Receipt Date: 20141201
  Transmission Date: 20150529
  Serious: Yes (Death)
  Sender: FDA-Public Use
  Company Number: IE-AMGEN-IRLSP2014053610

PATIENT
  Age: 76 Year
  Sex: Female

DRUGS (11)
  1. ARANESP [Suspect]
     Active Substance: DARBEPOETIN ALFA
     Indication: CHRONIC KIDNEY DISEASE
     Dosage: 30 MUG, QWK
     Route: 058
     Dates: start: 20090805
  2. ZAROXOLYN [Concomitant]
     Active Substance: METOLAZONE
  3. SERTRA [Concomitant]
     Dosage: UNK
  4. MIMPARA [Concomitant]
     Active Substance: CINACALCET HYDROCHLORIDE
  5. BURINEX [Concomitant]
     Active Substance: BUMETANIDE
  6. SERTRALINE [Concomitant]
     Active Substance: SERTRALINE HYDROCHLORIDE
  7. LERCANIDIPINE [Concomitant]
     Active Substance: LERCANIDIPINE
  8. FOLIC ACID. [Concomitant]
     Active Substance: FOLIC ACID
  9. RENAGEL [Concomitant]
     Active Substance: SEVELAMER HYDROCHLORIDE
  10. ASPIRIN                            /00002701/ [Concomitant]
     Active Substance: ASPIRIN
  11. NEBIVOLOL [Concomitant]
     Active Substance: NEBIVOLOL

REACTIONS (2)
  - Death [Fatal]
  - Haemoglobin abnormal [Unknown]
